FAERS Safety Report 8431169-X (Version None)
Quarter: 2012Q2

REPORT INFORMATION
  Report Type: 
  Country: None (occurrence: None)
  Receive Date: 20120612
  Receipt Date: 20120604
  Transmission Date: 20120825
  Serious: Yes (Other)
  Sender: FDA-Public Use
  Company Number: PHHY2012BR049597

PATIENT
  Age: 42 Year
  Sex: Female

DRUGS (2)
  1. TEGRETOL [Suspect]
     Dosage: UNK
     Dates: start: 20120602
  2. CLONAZEPAM [Suspect]
     Dosage: UNK
     Dates: start: 20120602

REACTIONS (5)
  - HALLUCINATION [None]
  - SPEECH DISORDER [None]
  - SOMNOLENCE [None]
  - DELIRIUM [None]
  - HEADACHE [None]
